FAERS Safety Report 9885559 (Version 2)
Quarter: 2014Q2

REPORT INFORMATION
  Report Type: Spontaneous
  Country: BR (occurrence: BR)
  Receive Date: 20140210
  Receipt Date: 20140404
  Transmission Date: 20141212
  Serious: No
  Sender: FDA-Public Use
  Company Number: BR-NOVOPROD-399634

PATIENT
  Age: 60 Year
  Sex: Male
  Weight: 74 kg

DRUGS (4)
  1. NOVORAPID FLEXPEN [Suspect]
     Indication: TYPE 2 DIABETES MELLITUS
     Dosage: (USING FOR 12 YEARS),ACCORDING TO BLOOD GLUCOSE LEVEL
     Route: 058
     Dates: start: 2002
  2. NOVOLIN R [Suspect]
     Indication: TYPE 2 DIABETES MELLITUS
     Dosage: UNK
     Route: 065
  3. ACTUS [Concomitant]
     Dosage: UNK
     Route: 065
  4. JANUVIA [Concomitant]
     Dosage: 50 MG
     Route: 065

REACTIONS (2)
  - Device malfunction [Unknown]
  - Hypoglycaemia [Unknown]
